FAERS Safety Report 13051998 (Version 1)
Quarter: 2016Q4

REPORT INFORMATION
  Report Type: Not Available
  Country: CH (occurrence: CH)
  Receive Date: 20161221
  Receipt Date: 20161221
  Transmission Date: 20170207
  Serious: Yes (Death, Other)
  Sender: FDA-Public Use
  Company Number: CH-PURDUE PHARMA-DEU-2016-0018488

PATIENT
  Age: 69 Year
  Sex: Female
  Weight: 57.2 kg

DRUGS (28)
  1. LAXOBERON [Concomitant]
     Active Substance: SODIUM PICOSULFATE
     Dosage: UNK
     Dates: start: 20161114, end: 20161124
  2. TAVEGYL [Concomitant]
     Active Substance: CLEMASTINE FUMARATE
     Dosage: UNK
     Dates: start: 20161123, end: 20161123
  3. ATENOLOL HELVEPHARM [Concomitant]
     Dosage: UNK
     Dates: end: 20161012
  4. OXYNORM [Suspect]
     Active Substance: OXYCODONE HYDROCHLORIDE
     Indication: PRODUCT USED FOR UNKNOWN INDICATION
     Dosage: 10 MG, UNK
     Route: 065
     Dates: start: 20161125
  5. OXYNORM [Suspect]
     Active Substance: OXYCODONE HYDROCHLORIDE
     Dosage: 5 MG, UNK
     Route: 065
     Dates: start: 20161116
  6. CIPROXIN                           /00697201/ [Suspect]
     Active Substance: CIPROFLOXACIN
     Indication: PRODUCT USED FOR UNKNOWN INDICATION
     Dosage: UNK
     Route: 065
     Dates: start: 20161124, end: 20161125
  7. ESOMEP                             /01479301/ [Suspect]
     Active Substance: ESOMEPRAZOLE
     Indication: PRODUCT USED FOR UNKNOWN INDICATION
     Dosage: UNK
     Route: 048
     Dates: start: 20161117, end: 20161124
  8. FRAGMIN [Suspect]
     Active Substance: DALTEPARIN SODIUM
     Indication: PRODUCT USED FOR UNKNOWN INDICATION
     Dosage: 5000 UNIT, UNK
     Route: 058
     Dates: start: 20161118, end: 20161124
  9. MOVICOL [Concomitant]
     Active Substance: POLYETHYLENE GLYCOL 3350\POTASSIUM CHLORIDE\SODIUM BICARBONATE\SODIUM CHLORIDE
  10. LYRICA [Concomitant]
     Active Substance: PREGABALIN
     Dosage: UNK
     Dates: start: 20161123, end: 20161124
  11. COCAINE [Concomitant]
     Active Substance: COCAINE
     Dosage: 20 ML, TID
     Route: 002
  12. PASPERTIN                          /00041902/ [Concomitant]
     Active Substance: METOCLOPRAMIDE HYDROCHLORIDE
     Dosage: 0.3 MG, UNK
  13. MEPHAMESON [Concomitant]
     Active Substance: DEXAMETHASONE
     Dosage: UNK
     Dates: start: 20161123, end: 20161123
  14. OXYNORM [Suspect]
     Active Substance: OXYCODONE HYDROCHLORIDE
     Dosage: 7 MG, UNK
     Route: 065
     Dates: start: 20161117, end: 20161124
  15. MINOCIN AKNE [Suspect]
     Active Substance: MINOCYCLINE HYDROCHLORIDE
     Indication: ANTIBIOTIC PROPHYLAXIS
     Dosage: UNK
     Route: 065
     Dates: start: 20161123, end: 20161124
  16. DAFALGAN [Suspect]
     Active Substance: ACETAMINOPHEN
     Indication: PRODUCT USED FOR UNKNOWN INDICATION
     Dosage: 1 G, DAILY
     Route: 065
     Dates: start: 20161115, end: 20161116
  17. BEPANTHEN                          /00178901/ [Concomitant]
     Route: 002
  18. DUROGESIC [Concomitant]
     Active Substance: FENTANYL
     Dosage: 75 MCG, Q1H
     Route: 062
  19. OXYNORM [Suspect]
     Active Substance: OXYCODONE HYDROCHLORIDE
     Dosage: 4 MG, UNK
     Route: 065
     Dates: start: 20161114, end: 20161116
  20. ZOLPIDEM [Suspect]
     Active Substance: ZOLPIDEM\ZOLPIDEM TARTRATE
     Indication: PRODUCT USED FOR UNKNOWN INDICATION
     Dosage: UNK
     Route: 065
     Dates: start: 20161115, end: 20161124
  21. PANTOZOL [Suspect]
     Active Substance: PANTOPRAZOLE SODIUM
     Indication: PRODUCT USED FOR UNKNOWN INDICATION
     Dosage: UNK
     Route: 065
     Dates: start: 20161115, end: 20161116
  22. TARGIN [Concomitant]
     Active Substance: NALOXONE HYDROCHLORIDE\OXYCODONE HYDROCHLORIDE
     Dosage: UNK
     Dates: end: 20161115
  23. EXFORGE HCT [Concomitant]
     Active Substance: AMLODIPINE BESYLATE\HYDROCHLOROTHIAZIDE\VALSARTAN
  24. MAGNESIOCARD CITRON [Concomitant]
     Dosage: 5 MMOL 2-2-0-0
  25. VI-DE 3 [Concomitant]
     Active Substance: CHOLECALCIFEROL
     Dosage: 4500 IE/MOL, UNK
     Dates: start: 20161124, end: 20161124
  26. ERBITUX [Suspect]
     Active Substance: CETUXIMAB
     Indication: IMMUNE ENHANCEMENT THERAPY
     Dosage: 400 MG, UNK
     Route: 042
     Dates: start: 20161123, end: 20161123
  27. INVANZ [Suspect]
     Active Substance: ERTAPENEM SODIUM
     Indication: PRODUCT USED FOR UNKNOWN INDICATION
     Dosage: UNK
     Route: 065
     Dates: start: 20161115, end: 20161115
  28. NOVALGIN [Concomitant]
     Active Substance: METAMIZOLE SODIUM
     Dosage: 0.5 G/ML, UNK

REACTIONS (4)
  - Coma [Unknown]
  - Hypoglycaemia [Unknown]
  - Oxygen saturation decreased [Unknown]
  - Acute hepatic failure [Fatal]

NARRATIVE: CASE EVENT DATE: 20161125
